FAERS Safety Report 7045125-X (Version None)
Quarter: 2010Q4

REPORT INFORMATION
  Report Type: 
  Country: None (occurrence: None)
  Receive Date: 20101013
  Receipt Date: 20101013
  Transmission Date: 20110411
  Serious: Yes (Hospitalization)
  Sender: FDA-Public Use
  Company Number: None

PATIENT
  Age: 87 Year
  Sex: Male

DRUGS (12)
  1. DIGOXIN [Suspect]
     Indication: CARDIAC FAILURE CONGESTIVE
     Dosage: 0.125 DAILY PO
     Route: 048
     Dates: start: 20100710, end: 20100819
  2. LEVOTHYROXINE [Concomitant]
  3. CLOPIDROGEL [Concomitant]
  4. ROSUVASTATIN [Concomitant]
  5. ESOMEPRAZOLE [Concomitant]
  6. METFORMIN HCL [Concomitant]
  7. OXYCONTIN [Concomitant]
  8. DOCUSATE SODIUM [Concomitant]
  9. SENNA [Concomitant]
  10. MIRALAX [Concomitant]
  11. VITAMINE B12 [Concomitant]
  12. CALTRATED [Concomitant]

REACTIONS (1)
  - MENTAL STATUS CHANGES [None]
